FAERS Safety Report 25817521 (Version 2)
Quarter: 2025Q4

REPORT INFORMATION
  Report Type: Report from Study
  Country: US (occurrence: US)
  Receive Date: 20250918
  Receipt Date: 20251117
  Transmission Date: 20260118
  Serious: Yes (Hospitalization, Other)
  Sender: ABBVIE
  Company Number: US-ABBVIE-6463595

PATIENT
  Age: 66 Year
  Sex: Female
  Weight: 72 kg

DRUGS (16)
  1. RINVOQ [Suspect]
     Active Substance: UPADACITINIB
     Indication: Psoriatic arthropathy
     Dosage: TAKE 1 TABLET
     Route: 048
     Dates: start: 202505, end: 20250827
  2. COSENTYX [Concomitant]
     Active Substance: SECUKINUMAB
     Indication: Rheumatoid arthritis
     Dosage: PEN
     Dates: start: 2021, end: 202504
  3. LEFLUNOMIDE [Concomitant]
     Active Substance: LEFLUNOMIDE
     Indication: Rheumatoid arthritis
     Route: 048
     Dates: start: 2024, end: 20250820
  4. VITAMIN C [Concomitant]
     Active Substance: ASCORBIC ACID
     Indication: Product used for unknown indication
     Dosage: 1000 MG 1 TABLET ORALLY ONCE A DAY
     Route: 048
  5. IRON [Concomitant]
     Active Substance: IRON
     Indication: Product used for unknown indication
     Dosage: (65 FE) MG 1 TABLET ORALLY TWICE A DAY
  6. AMPHETAMINE [Concomitant]
     Active Substance: AMPHETAMINE
     Indication: Product used for unknown indication
     Dosage: 12.5 MG 1 TABLET ORALLY Q D
  7. DEXTROAMPHETAMINE [Concomitant]
     Active Substance: DEXTROAMPHETAMINE
     Indication: Product used for unknown indication
     Dosage: 12.5 MG 1 TABLET ORALLY Q D
  8. CLONAZEPAM [Concomitant]
     Active Substance: CLONAZEPAM
     Indication: Product used for unknown indication
     Dosage: MG 2 TABLETS ORALLY AT NIGHT TIME
  9. LISINOPRIL [Concomitant]
     Active Substance: LISINOPRIL
     Indication: Product used for unknown indication
     Dosage: 10 MG 1 TABLET ORALLY ONCE A DAY
  10. MOUNJARO [Concomitant]
     Active Substance: TIRZEPATIDE
     Indication: Product used for unknown indication
     Dosage: 2.5 MG/0.5ML AS DIRECTED SUBCUTANEOUS
  11. PANTOPRAZOLE SODIUM [Concomitant]
     Active Substance: PANTOPRAZOLE SODIUM
     Indication: Product used for unknown indication
     Dosage: 40 MG 1 TABLET ORALLY ONCE A DAY
  12. SYNTHROID [Concomitant]
     Active Substance: LEVOTHYROXINE SODIUM
     Indication: Product used for unknown indication
     Dosage: 75 MCG 1 TABLET ON AN EMPTY STOMACH IN THE MORNING ORALLY ONCE A DAY 30 DAY(S)
  13. VITAMIN D3 [Concomitant]
     Active Substance: CHOLECALCIFEROL
     Indication: Product used for unknown indication
     Dosage: 25 MCG (1000 UT) 1 CAPSULE ORALLY ONCE A DAY 30 DAY(S
  14. ZEGERID [Concomitant]
     Active Substance: OMEPRAZOLE\SODIUM BICARBONATE
     Indication: Product used for unknown indication
     Dosage: 20-1100 MG 1 CAPSULE ON AN EMPTY STOMACH ORALLY ONCE A DAY PM AT BEDTIME
  15. LEFLUNOMIDE [Concomitant]
     Active Substance: LEFLUNOMIDE
     Indication: Product used for unknown indication
     Dosage: 10 MG 1 TABLET ORALLY ONCE A DAY. HOLD FOR FEVER, INFECTION OR SURGERY 90 DAYS
  16. PREDNISONE [Concomitant]
     Active Substance: PREDNISONE
     Indication: Product used for unknown indication
     Dosage: 5 MG 1 TABLET ORALLY ONCE A DAY 30 DAY(S

REACTIONS (6)
  - Renal cyst infection [Recovered/Resolved]
  - Nephrectomy [Recovered/Resolved]
  - Renal cyst [Unknown]
  - Hepatic steatosis [Unknown]
  - Infected cyst [Recovered/Resolved]
  - Escherichia infection [Recovered/Resolved]

NARRATIVE: CASE EVENT DATE: 20250624
